FAERS Safety Report 7624089-1 (Version None)
Quarter: 2011Q3

REPORT INFORMATION
  Report Type: 
  Country: None (occurrence: None)
  Receive Date: 20110720
  Receipt Date: 20110711
  Transmission Date: 20111222
  Serious: Yes (Other)
  Sender: FDA-Public Use
  Company Number: PHHY2011US56255

PATIENT
  Sex: Female

DRUGS (1)
  1. GILENYA [Suspect]
     Indication: MULTIPLE SCLEROSIS
     Dosage: 1 DF, QD
     Route: 048
     Dates: start: 20110318, end: 20110501

REACTIONS (4)
  - VISION BLURRED [None]
  - MACULAR OEDEMA [None]
  - VISUAL ACUITY REDUCED [None]
  - CONDITION AGGRAVATED [None]
